FAERS Safety Report 6154761-4 (Version None)
Quarter: 2009Q2

REPORT INFORMATION
  Report Type: 
  Country: None (occurrence: None)
  Receive Date: 20090414
  Receipt Date: 20090409
  Transmission Date: 20091009
  Serious: No
  Sender: FDA-Public Use
  Company Number: US-B.I. PHARMACEUTICALS,INC./RIDGEFIELD-2009-BP-04475BP

PATIENT
  Sex: Female

DRUGS (4)
  1. SPIRIVA [Suspect]
     Indication: CHRONIC OBSTRUCTIVE PULMONARY DISEASE
     Dosage: 18MCG
     Route: 055
     Dates: start: 20090403, end: 20090405
  2. ZOCOR (GENERIC) [Concomitant]
     Indication: CARDIAC DISORDER
  3. PLAVIX [Concomitant]
     Indication: STENT PLACEMENT
  4. SIMVASTATIN [Concomitant]
     Indication: CARDIAC DISORDER

REACTIONS (3)
  - EXOPHTHALMOS [None]
  - HEADACHE [None]
  - PAIN [None]
